FAERS Safety Report 6844305-3 (Version None)
Quarter: 2010Q3

REPORT INFORMATION
  Report Type: 
  Country: None (occurrence: None)
  Receive Date: 20100715
  Receipt Date: 20100707
  Transmission Date: 20110219
  Serious: Yes (Life-Threatening)
  Sender: FDA-Public Use
  Company Number: JP-WYE-H15586410

PATIENT
  Sex: Female
  Weight: 36 kg

DRUGS (4)
  1. ZOSYN [Suspect]
     Indication: PNEUMONIA
     Route: 041
     Dates: start: 20100604, end: 20100605
  2. DIGOSIN [Concomitant]
     Indication: CARDIAC FAILURE
     Route: 041
     Dates: start: 20100601
  3. GASTER [Concomitant]
     Indication: GASTRITIS
     Route: 041
     Dates: start: 20100601
  4. LASIX [Concomitant]
     Indication: CARDIAC FAILURE
     Route: 042
     Dates: start: 20100601

REACTIONS (4)
  - HEART RATE DECREASED [None]
  - OXYGEN SATURATION DECREASED [None]
  - PARESIS [None]
  - TONIC CONVULSION [None]
